FAERS Safety Report 5796772-4 (Version None)
Quarter: 2008Q2

REPORT INFORMATION
  Report Type: 
  Country: None (occurrence: None)
  Receive Date: 20080627
  Receipt Date: 20080616
  Transmission Date: 20081010
  Serious: Yes (Hospitalization, Other)
  Sender: FDA-Public Use
  Company Number: 49579

PATIENT
  Age: 64 Year
  Sex: Male

DRUGS (2)
  1. CISPLATIN [Suspect]
     Indication: NASOPHARYNGEAL CANCER
  2. PACLITAXEL INJ. 30MG/5 ML [Suspect]

REACTIONS (5)
  - APNOEA [None]
  - PHARYNGEAL STENOSIS [None]
  - RESPIRATION ABNORMAL [None]
  - SOMNOLENCE [None]
  - SPEECH DISORDER [None]
